FAERS Safety Report 9745712 (Version 1)
Quarter: 2013Q4

REPORT INFORMATION
  Report Type: Spontaneous
  Country: US (occurrence: US)
  Receive Date: 20131211
  Receipt Date: 20131211
  Transmission Date: 20140711
  Serious: Yes (Other)
  Sender: FDA-Public Use
  Company Number: US-ASTELLAS-2013US012722

PATIENT
  Age: 73 Year
  Sex: Male

DRUGS (1)
  1. PROGRAF [Suspect]
     Indication: LIVER TRANSPLANT
     Dosage: 2 MG, BID
     Route: 048
     Dates: start: 20061201

REACTIONS (7)
  - Personality change [Unknown]
  - Dementia [Unknown]
  - Mental disorder [Unknown]
  - Progressive multifocal leukoencephalopathy [Unknown]
  - Abnormal behaviour [Unknown]
  - Gait disturbance [Unknown]
  - Muscular weakness [Unknown]
